FAERS Safety Report 11809582 (Version 2)
Quarter: 2016Q1

REPORT INFORMATION
  Report Type: Spontaneous
  Country: US (occurrence: US)
  Receive Date: 20151208
  Receipt Date: 20160128
  Transmission Date: 20160525
  Serious: Yes (Other)
  Sender: FDA-Public Use
  Company Number: US-ACCORD-035975

PATIENT
  Age: 78 Year
  Sex: Male

DRUGS (5)
  1. LEUPRORELIN/LEUPRORELIN ACETATE [Concomitant]
     Indication: PROSTATE CANCER METASTATIC
  2. DOCETAXEL. [Suspect]
     Active Substance: DOCETAXEL
     Indication: PROSTATE CANCER METASTATIC
     Dosage: EVERY 3 WEEK DOSING (75 MG/ M2, TOTAL DOSE = 134 MG)
  3. CARVEDILOL/CARVEDILOL HYDROCHLODRIDE [Interacting]
     Active Substance: CARVEDILOL
     Indication: PRODUCT USED FOR UNKNOWN INDICATION
  4. BICALUTAMIDE. [Interacting]
     Active Substance: BICALUTAMIDE
     Indication: PROSTATE CANCER METASTATIC
  5. DRONEDARONE [Interacting]
     Active Substance: DRONEDARONE
     Indication: PRODUCT USED FOR UNKNOWN INDICATION

REACTIONS (3)
  - Drug interaction [Unknown]
  - Drug level increased [Unknown]
  - Cholangitis sclerosing [Not Recovered/Not Resolved]
